FAERS Safety Report 4483052-2 (Version None)
Quarter: 2004Q3

REPORT INFORMATION
  Report Type: 
  Country: None (occurrence: None)
  Receive Date: 20040921
  Receipt Date: 20040512
  Transmission Date: 20050211
  Serious: Yes (Death)
  Sender: FDA-Public Use
  Company Number: 163-20785-04050316

PATIENT
  Age: 73 Year
  Sex: Male
  Weight: 82.8 kg

DRUGS (14)
  1. THALOMID [Suspect]
     Indication: MULTIPLE MYELOMA
     Dosage: 200 MG, QD, ORAL
     Route: 048
     Dates: start: 20010501, end: 20030801
  2. THALOMID [Suspect]
     Indication: MULTIPLE MYELOMA
     Dosage: 200 MG, QD, ORAL
     Route: 048
     Dates: start: 20030801
  3. DEXAMETHASONE [Suspect]
     Indication: MULTIPLE MYELOMA
     Dosage: 20 MG, QD X 4 DAYS Q2-3 WEEKS
     Dates: start: 20030801
  4. ACYCLOVIR [Concomitant]
  5. BACTRIM DS [Concomitant]
  6. MULTI-VITAMINS [Concomitant]
  7. ACYCLOVIR [Concomitant]
  8. BACTRIM DS [Concomitant]
  9. MULTI-VITAMINS [Concomitant]
  10. FOLIC ACID [Concomitant]
  11. PRILOSEC [Concomitant]
  12. CALCIUM [Concomitant]
  13. ZOMETA [Concomitant]
  14. ANTIBIOTICS [Concomitant]

REACTIONS (1)
  - DEATH [None]
